FAERS Safety Report 18271122 (Version 2)
Quarter: 2021Q4

REPORT INFORMATION
  Report Type: Spontaneous
  Country: JP (occurrence: JP)
  Receive Date: 20200916
  Receipt Date: 20211119
  Transmission Date: 20220303
  Serious: Yes (Life-Threatening, Hospitalization, Other)
  Sender: FDA-Public Use
  Company Number: JP-MSD-M2020-17735

PATIENT
  Sex: Male
  Weight: 63 kg

DRUGS (11)
  1. KEYTRUDA [Suspect]
     Active Substance: PEMBROLIZUMAB
     Indication: Non-small cell lung cancer
     Dosage: 200 MILLIGRAM, EVERY 4 WEEKS
     Route: 041
     Dates: start: 20200707, end: 20200707
  2. AMLODIPINE BESYLATE [Concomitant]
     Active Substance: AMLODIPINE BESYLATE
     Indication: Hypertension
     Dosage: 2.5 MILLIGRAM, QD
     Route: 048
     Dates: start: 20191022
  3. CANDESARTAN CILEXETIL [Concomitant]
     Active Substance: CANDESARTAN CILEXETIL
     Indication: Hypertension
     Dosage: 8 MILLIGRAM, QD
     Route: 048
     Dates: start: 20191022
  4. BISOPROLOL FUMARATE [Concomitant]
     Active Substance: BISOPROLOL FUMARATE
     Indication: Hypertension
     Dosage: 2.5 MILLIGRAM, QD
     Route: 048
     Dates: start: 20191022
  5. SILODOSIN [Concomitant]
     Active Substance: SILODOSIN
     Indication: Benign prostatic hyperplasia
     Dosage: 4 MILLIGRAM, BID
     Route: 048
     Dates: start: 20191022
  6. CELECOXIB [Concomitant]
     Active Substance: CELECOXIB
     Indication: Cancer pain
     Dosage: 100 MILLIGRAM, BID
     Route: 048
     Dates: start: 20200703
  7. OXYCODONE HYDROCHLORIDE [Concomitant]
     Active Substance: OXYCODONE HYDROCHLORIDE
     Indication: Cancer pain
     Dosage: 5 MILLIGRAM, BID
     Route: 048
     Dates: start: 20200611
  8. OXYCODONE HYDROCHLORIDE [Concomitant]
     Active Substance: OXYCODONE HYDROCHLORIDE
     Indication: Cancer pain
     Dosage: 2.5 MILLIGRAM, PRN
     Route: 048
     Dates: start: 20200611
  9. REBAMIPIDE [Concomitant]
     Active Substance: REBAMIPIDE
     Indication: Prophylaxis
     Dosage: 100 MILLIGRAM, BID
     Route: 048
     Dates: start: 20200703
  10. CALCIUM CARBONATE\CHOLECALCIFEROL\MAGNESIUM CARBONATE [Concomitant]
     Active Substance: CALCIUM CARBONATE\CHOLECALCIFEROL\MAGNESIUM CARBONATE
     Indication: Prophylaxis
     Dosage: 2 DOSAGE FORM, QD
     Route: 048
     Dates: start: 20200703
  11. DENOSUMAB [Concomitant]
     Active Substance: DENOSUMAB
     Indication: Bone disorder
     Dosage: 120 MILLIGRAM, QD
     Route: 058
     Dates: start: 20200703

REACTIONS (5)
  - Polymyositis [Not Recovered/Not Resolved]
  - Chronic respiratory failure [Not Recovered/Not Resolved]
  - Duodenal ulcer haemorrhage [Recovered/Resolved]
  - Hepatic function abnormal [Recovered/Resolved]
  - Off label use [Unknown]

NARRATIVE: CASE EVENT DATE: 20200101
